FAERS Safety Report 6902812-9 (Version None)
Quarter: 2010Q3

REPORT INFORMATION
  Report Type: 
  Country: None (occurrence: None)
  Receive Date: 20100803
  Receipt Date: 20081002
  Transmission Date: 20110219
  Serious: Yes (Hospitalization)
  Sender: FDA-Public Use
  Company Number: US-PFIZER INC-2008065724

PATIENT

DRUGS (2)
  1. LYRICA [Suspect]
  2. ANALGESICS [Suspect]

REACTIONS (1)
  - RHABDOMYOLYSIS [None]
